FAERS Safety Report 19117624 (Version 1)
Quarter: 2021Q2

REPORT INFORMATION
  Report Type: Spontaneous
  Country: IE (occurrence: IE)
  Receive Date: 20210409
  Receipt Date: 20210409
  Transmission Date: 20210717
  Serious: Yes (Other)
  Sender: FDA-Public Use
  Company Number: IE-TEVA-2021-IE-1898838

PATIENT
  Age: 2 Week

DRUGS (6)
  1. CYCLIZINE (GENERIC) [Suspect]
     Active Substance: CYCLIZINE
     Indication: HYPEREMESIS GRAVIDARUM
     Dosage: FOR THE DURATION OF PREGNANCY.
     Route: 064
  2. OVREENA [Concomitant]
     Route: 064
  3. ESOMEPRAZOLE (G) [Suspect]
     Active Substance: ESOMEPRAZOLE
     Indication: HYPEREMESIS GRAVIDARUM
     Dosage: FOR THE DURATION OF PREGNANCY.
     Route: 064
  4. SALBUTAMOL CFC?FREE INHALER [Concomitant]
     Dosage: (DATES OF THERAPY UNSPECIFIED) , 100 MCG
     Route: 064
  5. OMEPRAZOLE (G) [Suspect]
     Active Substance: OMEPRAZOLE
     Indication: HYPEREMESIS GRAVIDARUM
     Dosage: FOR THE DURATION OF PREGNANCY.
     Route: 064
  6. STEMETIL [Suspect]
     Active Substance: PROCHLORPERAZINE
     Dosage: TREATMENT COMMENCED AT APPROX. 9 WEEKS GESTATION.
     Route: 064
     Dates: start: 20200428

REACTIONS (2)
  - Low birth weight baby [Not Recovered/Not Resolved]
  - Foetal exposure during pregnancy [Not Recovered/Not Resolved]
